FAERS Safety Report 9292305 (Version 1)
Quarter: 2013Q2

REPORT INFORMATION
  Report Type: Spontaneous
  Country: CH (occurrence: CH)
  Receive Date: 20130516
  Receipt Date: 20130516
  Transmission Date: 20140414
  Serious: Yes (Hospitalization)
  Sender: FDA-Public Use
  Company Number: PHHY2013CH047250

PATIENT
  Age: 61 Year
  Sex: Female
  Weight: 68.4 kg

DRUGS (5)
  1. ZOMETA [Suspect]
     Dosage: 4 MG /5 ML (CONCENTRATE FOR INFUSION)
     Route: 041
     Dates: start: 2005
  2. EFEXOR ER [Concomitant]
     Dosage: 75 MG, QD
     Route: 048
  3. FEMARA [Concomitant]
     Dosage: UNK
     Dates: start: 2009
  4. PANTOZOL [Concomitant]
     Dosage: 20 MG, QD
     Route: 048
  5. ROHYPNOL [Concomitant]
     Dosage: 1 MG, QD
     Route: 048

REACTIONS (3)
  - Osteonecrosis of jaw [Unknown]
  - Pain in jaw [Unknown]
  - Swelling [Unknown]
